FAERS Safety Report 5364825-0 (Version None)
Quarter: 2007Q2

REPORT INFORMATION
  Report Type: 
  Country: None (occurrence: None)
  Receive Date: 20070621
  Receipt Date: 20070613
  Transmission Date: 20071010
  Serious: Yes (Hospitalization)
  Sender: FDA-Public Use
  Company Number: PHHO2007NL09912

PATIENT
  Age: 64 Year
  Weight: 68.6 kg

DRUGS (2)
  1. MYCOPHENOLIC ACID ERL+ [Suspect]
     Dosage: 1080 MG, TID
     Route: 048
     Dates: start: 20061025, end: 20070117
  2. CYCLOSPORINE [Suspect]
     Indication: RENAL TRANSPLANT

REACTIONS (4)
  - BLOOD CREATININE INCREASED [None]
  - DRUG INEFFECTIVE [None]
  - KIDNEY TRANSPLANT REJECTION [None]
  - LUNG INFILTRATION [None]
